FAERS Safety Report 8397094-8 (Version None)
Quarter: 2012Q2

REPORT INFORMATION
  Report Type: 
  Country: None (occurrence: None)
  Receive Date: 20120530
  Receipt Date: 20120515
  Transmission Date: 20120825
  Serious: Yes (Other)
  Sender: FDA-Public Use
  Company Number: CHPA2012US011094

PATIENT
  Age: 85 Year
  Sex: Female

DRUGS (2)
  1. DRUG THERAPY NOS [Concomitant]
     Indication: INSOMNIA
  2. EX-LAX REG STR CHOCOLATED LAX PCS SEN [Suspect]
     Indication: CONSTIPATION
     Dosage: 2 DF, QHS
     Route: 048
     Dates: end: 20120513

REACTIONS (6)
  - JOINT INJURY [None]
  - KNEE DEFORMITY [None]
  - SPINAL PAIN [None]
  - MUSCULOSKELETAL PAIN [None]
  - INCORRECT DRUG ADMINISTRATION DURATION [None]
  - ASTHENIA [None]
